FAERS Safety Report 9844718 (Version 1)
Quarter: 2014Q1

REPORT INFORMATION
  Report Type: Spontaneous
  Country: US (occurrence: None)
  Receive Date: 20140122
  Receipt Date: 20140122
  Transmission Date: 20141002
  Serious: Yes (Death, Hospitalization)
  Sender: FDA-Public Use
  Company Number: B0959196A

PATIENT
  Age: 53 Year
  Sex: Male

DRUGS (5)
  1. BUPROPION HYDROCHLORIDE [Suspect]
     Indication: PRODUCT USED FOR UNKNOWN INDICATION
     Route: 048
  2. VENLAFAXINE HYDROCHLORIDE (FORMULATION UNKNOWN) (GENERIC) (VENLAFAXINE HYDROCHLORIDE) [Suspect]
     Indication: PRODUCT USED FOR UNKNOWN INDICATION
     Route: 048
  3. ETHANOL [Suspect]
     Indication: PRODUCT USED FOR UNKNOWN INDICATION
     Route: 048
  4. VALPROIC ACID [Concomitant]
  5. GABAPENTIN [Concomitant]

REACTIONS (7)
  - Completed suicide [None]
  - Incorrect dose administered [None]
  - Nausea [None]
  - Status epilepticus [None]
  - Unresponsive to stimuli [None]
  - Hypotension [None]
  - General physical health deterioration [None]
